FAERS Safety Report 13038052 (Version 1)
Quarter: 2016Q4

REPORT INFORMATION
  Report Type: Spontaneous
  Country: US (occurrence: US)
  Receive Date: 20161214
  Receipt Date: 20161214
  Transmission Date: 20170207
  Serious: Yes (Other)
  Sender: FDA-Public Use
  Company Number: None

PATIENT
  Age: 7 Year
  Sex: Male
  Weight: 20.25 kg

DRUGS (1)
  1. FLUTICASONE PROPIONATE. [Suspect]
     Active Substance: FLUTICASONE PROPIONATE
     Indication: ADENOIDAL HYPERTROPHY
     Dosage: ?          OTHER ROUTE:NASAL SPRAY?
     Route: 055
     Dates: start: 20160201, end: 20160601

REACTIONS (1)
  - Blepharospasm [None]

NARRATIVE: CASE EVENT DATE: 20161201
